FAERS Safety Report 6850534-5 (Version None)
Quarter: 2010Q3

REPORT INFORMATION
  Report Type: 
  Country: None (occurrence: None)
  Receive Date: 20100716
  Receipt Date: 20071017
  Transmission Date: 20110219
  Serious: No
  Sender: FDA-Public Use
  Company Number: US-PFIZER INC-2007088662

PATIENT
  Sex: Female
  Weight: 56.7 kg

DRUGS (7)
  1. CHANTIX [Suspect]
     Indication: SMOKING CESSATION THERAPY
     Route: 048
     Dates: start: 20071001, end: 20071001
  2. CARDIZEM [Concomitant]
     Indication: CARDIAC DISORDER
  3. XANAX [Concomitant]
  4. OTHER RESPIRATORY SYSTEM PRODUCTS [Concomitant]
  5. ALBUTEROL [Concomitant]
  6. ATROVENT [Concomitant]
  7. OXYGEN [Concomitant]

REACTIONS (3)
  - NAUSEA [None]
  - RESPIRATORY TRACT INFECTION [None]
  - VOMITING [None]
